FAERS Safety Report 4623587-2 (Version None)
Quarter: 2005Q2

REPORT INFORMATION
  Report Type: 
  Country: None (occurrence: None)
  Receive Date: 20050325
  Receipt Date: 20050113
  Transmission Date: 20051028
  Serious: No
  Sender: FDA-Public Use
  Company Number: USA041080282

PATIENT
  Age: 83 Year
  Sex: Female

DRUGS (8)
  1. FORTEO [Suspect]
     Indication: OSTEOPOROSIS
     Dosage: 20 UG/ 1 DAY
     Dates: start: 20040930
  2. TUMS (CALCIUM CARBONATE) [Concomitant]
  3. VITAMIN D [Concomitant]
  4. ATIVAN [Concomitant]
  5. ACIPHEX [Concomitant]
  6. LORAZEPAM [Concomitant]
  7. CLARITIN [Concomitant]
  8. NASAL SPRAY (OXYMETAZOLINE HYDROCHLORIDE) [Concomitant]

REACTIONS (9)
  - ASTHENIA [None]
  - DEPRESSION [None]
  - DIZZINESS [None]
  - FEELING ABNORMAL [None]
  - FREQUENT BOWEL MOVEMENTS [None]
  - HEART RATE INCREASED [None]
  - PARAESTHESIA [None]
  - SINUS CONGESTION [None]
  - THINKING ABNORMAL [None]
